FAERS Safety Report 9882799 (Version 2)
Quarter: 2014Q1

REPORT INFORMATION
  Report Type: Report from Study
  Country: HU (occurrence: HU)
  Receive Date: 20140207
  Receipt Date: 20140207
  Transmission Date: 20141002
  Serious: Yes (Death)
  Sender: FDA-Public Use
  Company Number: HU-TAKEDA-TPA2013A01959

PATIENT
  Sex: 0

DRUGS (6)
  1. FEBUXOSTAT [Suspect]
     Indication: TUMOUR LYSIS SYNDROME
     Dosage: 120 MG, QD
     Route: 048
     Dates: start: 20130214, end: 20130220
  2. EDNYT HCT [Concomitant]
     Indication: HYPERTENSION
     Dosage: 20 MG, QD
     Route: 048
     Dates: start: 20110224, end: 20130221
  3. EDNYT HCT [Concomitant]
     Dosage: 10 MG, QD
     Dates: start: 20110224, end: 20130221
  4. TELVIRAN [Concomitant]
     Indication: ANTIVIRAL PROPHYLAXIS
     Dosage: 400 MG, QD
     Route: 048
     Dates: start: 20130215
  5. SUMETROLIM [Concomitant]
     Indication: ANTIBIOTIC PROPHYLAXIS
     Dosage: 400 MG, BID
     Route: 048
     Dates: start: 20130215, end: 20130225
  6. SUMETROLIM [Concomitant]
     Dosage: 80 MG, BID
     Route: 048
     Dates: start: 20130215, end: 20130225

REACTIONS (1)
  - Bronchitis [Fatal]
